APPROVED DRUG PRODUCT: DIAZEPAM
Active Ingredient: DIAZEPAM
Strength: 5MG/ML
Dosage Form/Route: INJECTABLE;INJECTION
Application: A076815 | Product #001
Applicant: PARENTA PHARMACEUTICALS INC
Approved: Apr 15, 2004 | RLD: No | RS: No | Type: DISCN